FAERS Safety Report 11112788 (Version 4)
Quarter: 2015Q3

REPORT INFORMATION
  Report Type: Spontaneous
  Country: US (occurrence: US)
  Receive Date: 20150514
  Receipt Date: 20150929
  Transmission Date: 20151125
  Serious: Yes (Hospitalization, Disabling, Other)
  Sender: FDA-Public Use
  Company Number: US-009507513-1204USA00523

PATIENT
  Sex: Female
  Weight: 81.63 kg

DRUGS (14)
  1. FOSAMAX [Suspect]
     Active Substance: ALENDRONATE SODIUM
     Indication: OSTEOPENIA
  2. PREDNISONE. [Concomitant]
     Active Substance: PREDNISONE
     Indication: RHEUMATOID ARTHRITIS
     Dosage: 5-10 MG, DAILY
     Route: 048
     Dates: start: 1993
  3. PREMARIN [Concomitant]
     Active Substance: ESTROGENS, CONJUGATED
     Indication: PRODUCT USED FOR UNKNOWN INDICATION
     Dosage: UNK
     Dates: start: 2002, end: 2005
  4. ENBREL [Concomitant]
     Active Substance: ETANERCEPT
     Indication: RHEUMATOID ARTHRITIS
     Dosage: 50 MG, WEEKLY
     Route: 058
     Dates: start: 2001
  5. FOSAMAX [Suspect]
     Active Substance: ALENDRONATE SODIUM
     Indication: OSTEOPOROSIS
     Route: 048
     Dates: start: 2002, end: 2010
  6. ALENDRONATE SODIUM. [Suspect]
     Active Substance: ALENDRONATE SODIUM
     Indication: OSTEOPENIA
  7. PRILOSEC [Concomitant]
     Active Substance: OMEPRAZOLE MAGNESIUM
     Indication: PRODUCT USED FOR UNKNOWN INDICATION
     Dosage: 20 MG, BEDTIME
     Route: 048
     Dates: start: 2001, end: 2008
  8. FOSAMAX [Suspect]
     Active Substance: ALENDRONATE SODIUM
     Indication: OSTEOPENIA
  9. ATENOLOL. [Concomitant]
     Active Substance: ATENOLOL
     Indication: HYPERTENSION
     Dosage: 25 MG, DAILY
     Route: 048
     Dates: start: 2001
  10. CALCIUM (UNSPECIFIED) [Concomitant]
     Active Substance: CALCIUM
     Dosage: 500 MG, BID
     Route: 048
     Dates: start: 2002
  11. ALENDRONATE SODIUM. [Suspect]
     Active Substance: ALENDRONATE SODIUM
     Indication: OSTEOPOROSIS
     Dosage: 70 MG, WEEKLY
     Route: 048
     Dates: start: 20080327, end: 201002
  12. PROTONIX [Concomitant]
     Active Substance: PANTOPRAZOLE SODIUM
     Indication: PRODUCT USED FOR UNKNOWN INDICATION
     Dosage: 40 MG, DAILY
     Route: 048
     Dates: start: 2001
  13. VITAMIN D [Concomitant]
     Active Substance: CHOLECALCIFEROL
     Indication: PRODUCT USED FOR UNKNOWN INDICATION
     Dosage: UNK
     Dates: start: 2002
  14. FOSAMAX [Suspect]
     Active Substance: ALENDRONATE SODIUM
     Indication: OSTEOPOROSIS
     Dosage: 70 MG, WEEKLY ON SATURDAYS
     Route: 048
     Dates: start: 20020327, end: 20100523

REACTIONS (37)
  - Bone disorder [Unknown]
  - Procedural nausea [Unknown]
  - Back pain [Not Recovered/Not Resolved]
  - Osteoarthritis [Unknown]
  - Ligament sprain [Unknown]
  - Bursitis [Recovered/Resolved]
  - Intramedullary rod insertion [Unknown]
  - Foot operation [Unknown]
  - Haemorrhagic anaemia [Unknown]
  - Hysterectomy [Unknown]
  - Foot deformity [Unknown]
  - Joint dislocation [Unknown]
  - Procedural vomiting [Unknown]
  - Femur fracture [Recovering/Resolving]
  - Bronchitis [Unknown]
  - Scoliosis [Unknown]
  - Intervertebral disc disorder [Unknown]
  - Bursitis [Not Recovered/Not Resolved]
  - Left ventricular hypertrophy [Unknown]
  - Mitral valve prolapse [Unknown]
  - Low turnover osteopathy [Not Recovered/Not Resolved]
  - Deep vein thrombosis [Unknown]
  - Osteoporosis [Not Recovered/Not Resolved]
  - Femur fracture [Recovered/Resolved]
  - Carpal tunnel decompression [Unknown]
  - Skin disorder [Unknown]
  - Arthrodesis [Unknown]
  - Pulmonary embolism [Unknown]
  - Haemorrhagic anaemia [Recovering/Resolving]
  - Breast cyst excision [Unknown]
  - Foot operation [Unknown]
  - Cyst removal [Unknown]
  - Hypocalcaemia [Unknown]
  - Bursitis [Recovering/Resolving]
  - Intramedullary rod insertion [Recovered/Resolved]
  - Urinary tract infection [Unknown]
  - Radius fracture [Unknown]

NARRATIVE: CASE EVENT DATE: 20020416
